FAERS Safety Report 9733552 (Version 2)
Quarter: 2013Q4

REPORT INFORMATION
  Report Type: Report from Study
  Country: BE (occurrence: BE)
  Receive Date: 20131205
  Receipt Date: 20131205
  Transmission Date: 20140711
  Serious: Yes (Death, Hospitalization)
  Sender: FDA-Public Use
  Company Number: BE-ROCHE-1186387

PATIENT
  Age: 76 Year
  Sex: Female
  Weight: 72 kg

DRUGS (7)
  1. AVASTIN [Suspect]
     Indication: OVARIAN CANCER
     Route: 042
     Dates: start: 20121026, end: 20121210
  2. CARBOPLATIN [Suspect]
     Indication: OVARIAN CANCER
     Route: 042
     Dates: start: 20121010, end: 20130124
  3. PACLITAXEL [Suspect]
     Indication: OVARIAN CANCER
     Route: 042
     Dates: start: 20121010, end: 20130124
  4. EMCONCOR [Concomitant]
     Indication: HYPERTENSION
  5. ZESTRIL [Concomitant]
  6. ZOCOR [Concomitant]
     Indication: DYSLIPIDAEMIA
  7. INNOHEP [Concomitant]
     Route: 058
     Dates: start: 20120910

REACTIONS (2)
  - Transient ischaemic attack [Recovered/Resolved with Sequelae]
  - Death [Fatal]
